FAERS Safety Report 11102504 (Version 1)
Quarter: 2015Q2

REPORT INFORMATION
  Report Type: Spontaneous
  Country: CN (occurrence: CN)
  Receive Date: 20150511
  Receipt Date: 20150511
  Transmission Date: 20150821
  Serious: Yes (Hospitalization, Other)
  Sender: FDA-Public Use
  Company Number: CN-JNJFOC-20150505429

PATIENT

DRUGS (2)
  1. XARELTO [Suspect]
     Active Substance: RIVAROXABAN
     Indication: VENOUS THROMBOSIS LIMB
     Route: 048
  2. XARELTO [Suspect]
     Active Substance: RIVAROXABAN
     Indication: EMBOLISM VENOUS
     Route: 048

REACTIONS (6)
  - Pyrexia [Unknown]
  - Slow response to stimuli [Unknown]
  - Nasopharyngitis [Unknown]
  - Haemorrhage [Unknown]
  - Unresponsive to stimuli [Unknown]
  - Product use issue [Unknown]

NARRATIVE: CASE EVENT DATE: 20150503
